FAERS Safety Report 9447364 (Version 1)
Quarter: 2013Q3

REPORT INFORMATION
  Report Type: Spontaneous
  Country: DE (occurrence: DE)
  Receive Date: 20130808
  Receipt Date: 20130808
  Transmission Date: 20140515
  Serious: Yes (Other)
  Sender: FDA-Public Use
  Company Number: DE-ROCHE-1250552

PATIENT
  Sex: Male
  Weight: 72 kg

DRUGS (4)
  1. PEGASYS [Suspect]
     Indication: HEPATITIS C
     Route: 065
     Dates: end: 201208
  2. PEGASYS [Suspect]
     Route: 058
     Dates: start: 20110808, end: 20120302
  3. COPEGUS [Concomitant]
     Indication: HEPATITIS C
     Route: 065
     Dates: end: 201208
  4. COPEGUS [Concomitant]
     Route: 048
     Dates: start: 20110808, end: 20120309

REACTIONS (3)
  - Glomerulonephritis membranoproliferative [Not Recovered/Not Resolved]
  - Renal impairment [Unknown]
  - Hepatitis B [Unknown]
